APPROVED DRUG PRODUCT: CHLORAMPHENICOL
Active Ingredient: CHLORAMPHENICOL
Strength: 0.5%
Dosage Form/Route: SOLUTION/DROPS;OPHTHALMIC
Application: A062628 | Product #001
Applicant: ALCON LABORATORIES INC
Approved: Sep 25, 1985 | RLD: No | RS: No | Type: DISCN